FAERS Safety Report 20655160 (Version 1)
Quarter: 2022Q1

REPORT INFORMATION
  Report Type: Report from Study
  Country: US (occurrence: US)
  Receive Date: 20220330
  Receipt Date: 20220330
  Transmission Date: 20220423
  Serious: No
  Sender: FDA-Public Use
  Company Number: US-NOVARTISTESTPH-NVSC2022US072112

PATIENT
  Age: 46 Year
  Sex: Female
  Weight: 131.54 kg

DRUGS (1)
  1. KESIMPTA [Suspect]
     Active Substance: OFATUMUMAB
     Indication: Relapsing-remitting multiple sclerosis
     Dosage: 20 MG(FIRST DOSE OF 3 LOADING DOSES, THEN 1DOSE PER MONTH)
     Route: 058
     Dates: start: 20220328, end: 20220328

REACTIONS (6)
  - Nasal congestion [Recovered/Resolved]
  - Pharyngeal swelling [Recovered/Resolved]
  - Injection site pruritus [Recovered/Resolved]
  - Chills [Recovered/Resolved]
  - Pain [Recovered/Resolved]
  - Joint swelling [Recovered/Resolved]

NARRATIVE: CASE EVENT DATE: 20220328
